FAERS Safety Report 13412730 (Version 1)
Quarter: 2017Q2

REPORT INFORMATION
  Report Type: Spontaneous
  Country: US (occurrence: US)
  Receive Date: 20170406
  Receipt Date: 20170406
  Transmission Date: 20170830
  Serious: No
  Sender: FDA-Public Use
  Company Number: None

PATIENT
  Age: 64 Year
  Weight: 81 kg

DRUGS (6)
  1. NATUREMADE MULTI FOR HIM 50+ [Concomitant]
  2. PANTOPRAZOLE SOD [Suspect]
     Active Substance: PANTOPRAZOLE SODIUM
     Indication: BARRETT^S OESOPHAGUS
     Dosage: ?          QUANTITY:1 TABLET(S);?
     Route: 048
     Dates: start: 20170202, end: 20170401
  3. NATURES WAY OLIVE LEAF CAPSULE [Concomitant]
  4. DEXLANSOPRAZOLE [Concomitant]
     Active Substance: DEXLANSOPRAZOLE
  5. HEALTHY ORIGINS NATURAL PROBIOTIC [Concomitant]
  6. BAKING SODA IN WATER [Concomitant]

REACTIONS (3)
  - Constipation [None]
  - Weight increased [None]
  - Condition aggravated [None]

NARRATIVE: CASE EVENT DATE: 20170320
